FAERS Safety Report 5999138-7 (Version None)
Quarter: 2008Q4

REPORT INFORMATION
  Report Type: 
  Country: None (occurrence: None)
  Receive Date: 20081211
  Receipt Date: 20081125
  Transmission Date: 20090506
  Serious: Yes (Hospitalization)
  Sender: FDA-Public Use
  Company Number: KV200800552

PATIENT
  Age: 54 Year
  Sex: Female

DRUGS (7)
  1. MORPHINE SULFATE [Suspect]
     Indication: ARTHRALGIA
     Dosage: 30 MG, TID, ORAL
     Route: 048
     Dates: start: 20080904, end: 20080901
  2. MORPHINE SULFATE [Suspect]
     Indication: SARCOIDOSIS
     Dosage: 30 MG, TID, ORAL
     Route: 048
     Dates: start: 20080904, end: 20080901
  3. LIPITOR [Concomitant]
  4. LEVOXYL [Concomitant]
  5. FOLIC ACID [Concomitant]
  6. ESTRATEST H.S. [Concomitant]
  7. MORPHINE SULFATE [Concomitant]

REACTIONS (4)
  - ADHESION [None]
  - DEHYDRATION [None]
  - HYPOPHAGIA [None]
  - ILEUS [None]
